FAERS Safety Report 10468972 (Version 1)
Quarter: 2014Q3

REPORT INFORMATION
  Report Type: Report from Study
  Country: US (occurrence: US)
  Receive Date: 20140923
  Receipt Date: 20140923
  Transmission Date: 20150326
  Serious: Yes (Hospitalization)
  Sender: FDA-Public Use
  Company Number: US-BIOGENIDEC-2014BI096094

PATIENT
  Age: 64 Year
  Sex: Female

DRUGS (17)
  1. VOLTAREN TOPICAL GEL [Concomitant]
  2. CYMBALTA [Concomitant]
     Active Substance: DULOXETINE HYDROCHLORIDE
  3. CALCIUM [Concomitant]
     Active Substance: CALCIUM
  4. DETROL [Concomitant]
     Active Substance: TOLTERODINE TARTRATE
  5. MULTIPLE VITAMIN [Concomitant]
     Active Substance: VITAMINS
  6. NASONEX [Concomitant]
     Active Substance: MOMETASONE FUROATE
  7. ZOCOR [Concomitant]
     Active Substance: SIMVASTATIN
  8. TIZANIDINE [Concomitant]
     Active Substance: TIZANIDINE
  9. XARELTO [Concomitant]
     Active Substance: RIVAROXABAN
  10. VITAMIN D [Concomitant]
     Active Substance: CHOLECALCIFEROL
  11. ZYRTEC [Concomitant]
     Active Substance: CETIRIZINE HYDROCHLORIDE
  12. TRAZODONE [Concomitant]
     Active Substance: TRAZODONE HYDROCHLORIDE
  13. TECFIDERA [Suspect]
     Active Substance: DIMETHYL FUMARATE
     Indication: MULTIPLE SCLEROSIS
     Dates: start: 20140709
  14. PREMPRO [Concomitant]
     Active Substance: ESTROGENS, CONJUGATED\MEDROXYPROGESTERONE ACETATE
  15. FLUTICASONE [Concomitant]
     Active Substance: FLUTICASONE\FLUTICASONE PROPIONATE
  16. LEVOTHYROXINE [Concomitant]
     Active Substance: LEVOTHYROXINE
  17. NAPROXEN. [Concomitant]
     Active Substance: NAPROXEN

REACTIONS (3)
  - Chest pain [Unknown]
  - Dyspnoea [Not Recovered/Not Resolved]
  - Pulmonary thrombosis [Unknown]

NARRATIVE: CASE EVENT DATE: 20140903
